FAERS Safety Report 17532449 (Version 3)
Quarter: 2020Q1

REPORT INFORMATION
  Report Type: Report from Study
  Country: GT (occurrence: GT)
  Receive Date: 20200312
  Receipt Date: 20200326
  Transmission Date: 20200409
  Serious: Yes (Hospitalization)
  Sender: FDA-Public Use
  Company Number: GT-JNJFOC-20200301718

PATIENT
  Sex: Male
  Weight: 137 kg

DRUGS (7)
  1. IMUREL [Concomitant]
     Active Substance: AZATHIOPRINE SODIUM
     Indication: PRODUCT USED FOR UNKNOWN INDICATION
     Route: 065
  2. PENTASA [Concomitant]
     Active Substance: MESALAMINE
     Indication: PRODUCT USED FOR UNKNOWN INDICATION
     Route: 065
  3. PRIDAC [Concomitant]
  4. PREGABALIN. [Concomitant]
     Active Substance: PREGABALIN
  5. SULFASALAZINE. [Concomitant]
     Active Substance: SULFASALAZINE
  6. MAALOX ANTACID [Concomitant]
     Active Substance: ALUMINUM HYDROXIDE\DIMETHICONE\MAGNESIUM HYDROXIDE
  7. STELARA [Suspect]
     Active Substance: USTEKINUMAB
     Indication: CROHN^S DISEASE
     Route: 058
     Dates: start: 20190110

REACTIONS (8)
  - Pain [Unknown]
  - Skin infection [Unknown]
  - Crohn^s disease [Not Recovered/Not Resolved]
  - Depression [Unknown]
  - Arthralgia [Unknown]
  - Headache [Unknown]
  - Weight increased [Unknown]
  - Arthritis [Unknown]

NARRATIVE: CASE EVENT DATE: 2019
